FAERS Safety Report 8406829-7 (Version None)
Quarter: 2012Q2

REPORT INFORMATION
  Report Type: 
  Country: None (occurrence: None)
  Receive Date: 20120529
  Receipt Date: 20120305
  Transmission Date: 20120825
  Serious: Yes (Life-Threatening)
  Sender: FDA-Public Use
  Company Number: 12-386

PATIENT
  Sex: Male

DRUGS (1)
  1. IBUPROFEN [Suspect]
     Dosage: 400MG / ORAL
     Route: 048
     Dates: start: 20120405

REACTIONS (1)
  - RENAL FAILURE ACUTE [None]
